FAERS Safety Report 11547746 (Version 2)
Quarter: 2015Q3

REPORT INFORMATION
  Report Type: Spontaneous
  Country: IT (occurrence: IT)
  Receive Date: 20150924
  Receipt Date: 20150930
  Transmission Date: 20151125
  Serious: Yes (Other)
  Sender: FDA-Public Use
  Company Number: IT-SA-2015SA142412

PATIENT
  Age: 53 Year
  Sex: Female

DRUGS (2)
  1. ERBITUX [Suspect]
     Active Substance: CETUXIMAB
     Indication: COLON CANCER
     Route: 042
  2. OXALIPLATIN. [Suspect]
     Active Substance: OXALIPLATIN
     Indication: COLON CANCER
     Route: 042

REACTIONS (4)
  - Hypertrichosis [Unknown]
  - Pruritus [Unknown]
  - Neutropenia [Unknown]
  - Rash [Unknown]

NARRATIVE: CASE EVENT DATE: 20150916
